FAERS Safety Report 5731860-X (Version None)
Quarter: 2008Q2

REPORT INFORMATION
  Report Type: 
  Country: None (occurrence: None)
  Receive Date: 20080508
  Receipt Date: 20080506
  Transmission Date: 20081010
  Serious: Yes (Other)
  Sender: FDA-Public Use
  Company Number: B0519495A

PATIENT
  Sex: Female

DRUGS (3)
  1. REQUIP [Suspect]
     Dosage: 1MG AT NIGHT
  2. ZOLPIDEM TARTRATE [Concomitant]
  3. FLUNITRAZEPAM [Concomitant]

REACTIONS (4)
  - FORMICATION [None]
  - HALLUCINATION [None]
  - NIGHTMARE [None]
  - RESTLESSNESS [None]
